FAERS Safety Report 7442788-1 (Version None)
Quarter: 2011Q2

REPORT INFORMATION
  Report Type: 
  Country: None (occurrence: None)
  Receive Date: 20110428
  Receipt Date: 20110330
  Transmission Date: 20111010
  Serious: No
  Sender: FDA-Public Use
  Company Number: US-BAYER-2011-029665

PATIENT
  Age: 55 Year
  Sex: Female
  Weight: 112 kg

DRUGS (8)
  1. AMLODIPINE [Concomitant]
  2. METFORMIN [Concomitant]
  3. TRAZODONE [Concomitant]
  4. VENLAFAXINE [Concomitant]
  5. ALEVE [Suspect]
     Indication: MUSCULOSKELETAL PAIN
     Dosage: 880 MG, ONCE
     Dates: start: 20110330
  6. DIOVAN [Concomitant]
  7. SIMVASTATIN [Concomitant]
  8. DYAZIDE [Concomitant]

REACTIONS (1)
  - NO ADVERSE EVENT [None]
